FAERS Safety Report 18764156 (Version 1)
Quarter: 2021Q1

REPORT INFORMATION
  Report Type: Spontaneous
  Country: TW (occurrence: TW)
  Receive Date: 20210120
  Receipt Date: 20210120
  Transmission Date: 20210419
  Serious: Yes (Hospitalization)
  Sender: FDA-Public Use
  Company Number: NVSC2021TW011716

PATIENT
  Age: 1 Year
  Sex: Male

DRUGS (2)
  1. CEFTRIAXONE. [Suspect]
     Active Substance: CEFTRIAXONE
     Indication: LEUKOCYTOSIS
     Dosage: 100 MG/KG, QD(Q12H)
     Route: 041
  2. CEFTRIAXONE. [Suspect]
     Active Substance: CEFTRIAXONE
     Indication: C-REACTIVE PROTEIN INCREASED

REACTIONS (2)
  - Cholelithiasis [Recovering/Resolving]
  - Product use in unapproved indication [Unknown]
